FAERS Safety Report 23166071 (Version 1)
Quarter: 2023Q4

REPORT INFORMATION
  Report Type: Spontaneous
  Country: BR (occurrence: BR)
  Receive Date: 20231109
  Receipt Date: 20231109
  Transmission Date: 20240110
  Serious: Yes (Other)
  Sender: FDA-Public Use
  Company Number: BR-TAKEDA-2023TUS108603

PATIENT
  Sex: Male
  Weight: 58 kg

DRUGS (1)
  1. DEXILANT [Suspect]
     Active Substance: DEXLANSOPRAZOLE
     Indication: Gastric ulcer
     Dosage: UNK
     Route: 065

REACTIONS (3)
  - Dysentery [Not Recovered/Not Resolved]
  - Weight decreased [Unknown]
  - Off label use [Unknown]
